FAERS Safety Report 8314167 (Version 2)
Quarter: 2013Q1

REPORT INFORMATION
  Report Type: Spontaneous
  Country: GB (occurrence: None)
  Receive Date: 20111212
  Receipt Date: 20130318
  Transmission Date: 20140127
  Serious: Yes (Hospitalization)
  Sender: FDA-Public Use
  Company Number: 2011030457

PATIENT
  Age: 3 Year
  Sex: Male

DRUGS (1)
  1. HIZENTRA [Suspect]
     Indication: WISKOTT-ALDRICH SYNDROME
     Dosage: 4 G QD;
     Dates: start: 20111125, end: 20111125

REACTIONS (5)
  - Vomiting [None]
  - Headache [None]
  - Lethargy [None]
  - Peripheral coldness [None]
  - Body temperature decreased [None]
